FAERS Safety Report 9051353 (Version 2)
Quarter: 2013Q1

REPORT INFORMATION
  Report Type: Spontaneous
  Country: PH (occurrence: PH)
  Receive Date: 20130206
  Receipt Date: 20130212
  Transmission Date: 20140127
  Serious: Yes (Hospitalization)
  Sender: FDA-Public Use
  Company Number: PH-009507513-1302PHL000744

PATIENT
  Age: 68 Year
  Sex: Female

DRUGS (6)
  1. JANUVIA [Suspect]
     Dosage: 50 MG, QD
     Route: 048
     Dates: start: 201208, end: 201301
  2. JANUMET [Suspect]
     Dosage: 50/500 MG, BID
     Route: 048
     Dates: start: 201301
  3. GLIMEPIRIDE [Concomitant]
     Indication: DIABETES MELLITUS
  4. LOSARTAN POTASSIUM [Concomitant]
     Indication: HYPERTENSION
  5. SIMVASTATIN [Concomitant]
     Indication: HYPERLIPIDAEMIA
  6. PANTOPRAZOLE [Concomitant]

REACTIONS (2)
  - Cholecystectomy [Recovering/Resolving]
  - Blood glucose increased [Recovered/Resolved]
